FAERS Safety Report 16494760 (Version 1)
Quarter: 2019Q2

REPORT INFORMATION
  Report Type: Report from Study
  Country: TW (occurrence: TW)
  Receive Date: 20190628
  Receipt Date: 20190628
  Transmission Date: 20190711
  Serious: Yes (Death, Other)
  Sender: FDA-Public Use
  Company Number: TW-GLAXOSMITHKLINE-TW2019GSK116293

PATIENT

DRUGS (1)
  1. LAMIVUDINE. [Suspect]
     Active Substance: LAMIVUDINE
     Indication: HEPATITIS B
     Dosage: UNK

REACTIONS (4)
  - Lung neoplasm malignant [Fatal]
  - Drug resistance [Unknown]
  - Viral mutation identified [Unknown]
  - Pathogen resistance [Unknown]
